FAERS Safety Report 9815242 (Version 1)
Quarter: 2014Q1

REPORT INFORMATION
  Report Type: Spontaneous
  Country: US (occurrence: US)
  Receive Date: 20140114
  Receipt Date: 20140114
  Transmission Date: 20141002
  Serious: No
  Sender: FDA-Public Use
  Company Number: US-009507513-1401USA003006

PATIENT
  Age: 29 Year
  Sex: Female

DRUGS (5)
  1. RALTEGRAVIR POTASSIUM [Suspect]
     Dosage: TOTAL DAILY DOSE 800
     Route: 048
     Dates: start: 2011
  2. LAMIVUDINE (+) ZIDOVUDINE [Suspect]
     Dosage: TOTAL DAILY DOSE 2
     Route: 048
     Dates: start: 2010
  3. LOPINAVIR (+) RITONAVIR [Suspect]
     Dosage: TOTAL DAILY DOSE 4
     Route: 048
     Dates: start: 2010
  4. TENOFOVIR DISOPROXIL FUMARATE [Suspect]
     Dosage: TOTAL DAILY DOSE 1
     Route: 048
     Dates: start: 2011
  5. EMTRICITABINE [Suspect]
     Dosage: UNK

REACTIONS (1)
  - Exposure during pregnancy [Recovered/Resolved]
